FAERS Safety Report 23937420 (Version 1)
Quarter: 2024Q2

REPORT INFORMATION
  Report Type: Spontaneous
  Country: HR (occurrence: HR)
  Receive Date: 20240604
  Receipt Date: 20240604
  Transmission Date: 20240716
  Serious: Yes (Hospitalization)
  Sender: FDA-Public Use
  Company Number: None

PATIENT
  Age: 42 Year
  Sex: Female
  Weight: 60 kg

DRUGS (1)
  1. FEVARIN [Suspect]
     Active Substance: FLUVOXAMINE MALEATE
     Indication: Insomnia
     Dosage: 100 MILLIGRAM, QD, 1 BEFORE SLEEP
     Route: 048
     Dates: start: 20240519, end: 20240519

REACTIONS (8)
  - Balance disorder [Recovering/Resolving]
  - Disorientation [Recovering/Resolving]
  - Visual impairment [Recovering/Resolving]
  - Vertigo [Recovering/Resolving]
  - Chills [Recovered/Resolved]
  - Dizziness [Recovering/Resolving]
  - Nausea [Recovered/Resolved]
  - Decreased appetite [Recovered/Resolved]

NARRATIVE: CASE EVENT DATE: 20240519
